FAERS Safety Report 17636824 (Version 1)
Quarter: 2020Q2

REPORT INFORMATION
  Report Type: Spontaneous
  Country: US (occurrence: US)
  Receive Date: 20200406
  Receipt Date: 20200406
  Transmission Date: 20200713
  Serious: Yes (Hospitalization)
  Sender: FDA-Public Use
  Company Number: None

PATIENT
  Age: 56 Year
  Sex: Male

DRUGS (15)
  1. MAGNESIUM [Concomitant]
     Active Substance: MAGNESIUM
  2. WELCHOL [Concomitant]
     Active Substance: COLESEVELAM HYDROCHLORIDE
  3. CYCLOBENZAPRINE. [Concomitant]
     Active Substance: CYCLOBENZAPRINE
  4. FENOFIBRATE. [Concomitant]
     Active Substance: FENOFIBRATE
  5. HUMIRA [Suspect]
     Active Substance: ADALIMUMAB
     Indication: RHEUMATOID ARTHRITIS
     Dosage: ?          OTHER FREQUENCY:EVERY 2 WEEKS;?
     Route: 058
  6. PHENYTOIN. [Concomitant]
     Active Substance: PHENYTOIN
  7. CEFUROXIME. [Concomitant]
     Active Substance: CEFUROXIME
  8. VITAMIN D [Concomitant]
     Active Substance: VITAMIN D NOS
  9. TOUJEO [Concomitant]
     Active Substance: INSULIN GLARGINE
  10. RAMIPRIL. [Concomitant]
     Active Substance: RAMIPRIL
  11. ZETIA [Concomitant]
     Active Substance: EZETIMIBE
  12. OXYCODONE [Concomitant]
     Active Substance: OXYCODONE
  13. NOVOLOG [Concomitant]
     Active Substance: INSULIN ASPART
  14. ESCITALOPRAM [Concomitant]
     Active Substance: ESCITALOPRAM OXALATE
  15. DILAUDID [Concomitant]
     Active Substance: HYDROMORPHONE HYDROCHLORIDE

REACTIONS (1)
  - Coronary arterial stent insertion [None]

NARRATIVE: CASE EVENT DATE: 20200309
